FAERS Safety Report 10391252 (Version 16)
Quarter: 2019Q1

REPORT INFORMATION
  Report Type: Report from Study
  Country: JP (occurrence: JP)
  Receive Date: 20140818
  Receipt Date: 20190218
  Transmission Date: 20190417
  Serious: Yes (Life-Threatening, Hospitalization, Disabling, Other)
  Sender: FDA-Public Use
  Company Number: JP-ALEXION PHARMACEUTICALS INC.-A201403064

PATIENT

DRUGS (29)
  1. SOLIRIS [Suspect]
     Active Substance: ECULIZUMAB
     Dosage: 300 MG, SINGLE
     Route: 042
     Dates: start: 20130913, end: 20130913
  2. ALFAROL [Concomitant]
     Active Substance: ALFACALCIDOL
     Indication: ATYPICAL HAEMOLYTIC URAEMIC SYNDROME
     Dosage: UNK UNK, QD
     Route: 048
     Dates: start: 20140710
  3. LAC-B [Concomitant]
     Active Substance: BIFIDOBACTERIUM SPP.
     Indication: HAEMOLYTIC URAEMIC SYNDROME
     Dosage: 0.5 G, TID
     Route: 048
     Dates: start: 20140115
  4. METHYLPREDNISOLONE. [Concomitant]
     Active Substance: METHYLPREDNISOLONE
     Indication: PROPHYLAXIS
     Dosage: 4 MG, DAILY
     Route: 041
     Dates: start: 20130830, end: 20130830
  5. SOLIRIS [Suspect]
     Active Substance: ECULIZUMAB
     Dosage: 160 MG, SINGLE
     Route: 042
     Dates: start: 20131014, end: 20131014
  6. SOLIRIS [Suspect]
     Active Substance: ECULIZUMAB
     Dosage: 300 MG, Q3W
     Route: 042
     Dates: start: 20131022
  7. SOLIRIS [Suspect]
     Active Substance: ECULIZUMAB
     Dosage: 300 MG, Q2W
     Route: 042
     Dates: start: 20150612
  8. LONGES [Concomitant]
     Active Substance: LISINOPRIL
     Indication: ATYPICAL HAEMOLYTIC URAEMIC SYNDROME
     Dosage: 1 MG, QD
     Route: 048
     Dates: start: 20140826, end: 20150321
  9. LONGES [Concomitant]
     Active Substance: LISINOPRIL
     Dosage: 0.7 MG, QD
     Route: 048
     Dates: start: 20150322, end: 20150521
  10. AMLODIPINE [Concomitant]
     Active Substance: AMLODIPINE BESYLATE
     Indication: ATYPICAL HAEMOLYTIC URAEMIC SYNDROME
     Dosage: 0.75 MG, BID
     Route: 048
     Dates: start: 20140226, end: 20141029
  11. POTASSIUM CHLORIDE. [Concomitant]
     Active Substance: POTASSIUM CHLORIDE
     Indication: HAEMOLYTIC URAEMIC SYNDROME
     Dosage: 0.2-0.4G, ONCE OR TWICE PER DAY
     Route: 048
     Dates: start: 20140723
  12. NESP [Concomitant]
     Active Substance: DARBEPOETIN ALFA
     Indication: HAEMOLYTIC URAEMIC SYNDROME
     Dosage: 60-120 MCG, Q2W
     Route: 058
     Dates: start: 20141212
  13. METHYLPREDNISOLONE. [Concomitant]
     Active Substance: METHYLPREDNISOLONE
     Dosage: 6 MG, DAILY
     Route: 041
     Dates: start: 20130906
  14. SOLIRIS [Suspect]
     Active Substance: ECULIZUMAB
     Dosage: 300 MG, SINGLE
     Route: 042
     Dates: start: 20130906, end: 20130906
  15. SOLIRIS [Suspect]
     Active Substance: ECULIZUMAB
     Dosage: 300 MG, UNK
     Route: 042
     Dates: end: 20150522
  16. ATARAX-P                           /00058402/ [Concomitant]
     Active Substance: HYDROXYZINE HYDROCHLORIDE
     Indication: PROPHYLAXIS
     Dosage: 2 MG, UNK
     Route: 041
     Dates: start: 20130830
  17. SOLIRIS [Suspect]
     Active Substance: ECULIZUMAB
     Dosage: 300 MG, UNK
     Route: 042
  18. SODIUM VALPROATE [Concomitant]
     Active Substance: VALPROATE SODIUM
     Indication: EPILEPSY
     Dosage: UNK UNK, TID
     Route: 048
     Dates: start: 20150412, end: 20150412
  19. LONGES [Concomitant]
     Active Substance: LISINOPRIL
     Dosage: 0.5 MG, QD
     Route: 048
     Dates: start: 20150522
  20. AMLODIPINE [Concomitant]
     Active Substance: AMLODIPINE BESYLATE
     Dosage: 0.75 MG, QD
     Route: 048
     Dates: start: 20141030, end: 20150303
  21. WASSER V [Concomitant]
     Active Substance: ASCORBIC ACID\VITAMIN B COMPLEX
     Indication: ATYPICAL HAEMOLYTIC URAEMIC SYNDROME
     Dosage: 0.07 G, QD
     Route: 048
     Dates: start: 20131024
  22. INCREMIN                           /00023544/ [Concomitant]
     Indication: ATYPICAL HAEMOLYTIC URAEMIC SYNDROME
     Dosage: UNK UNK, BID
     Route: 048
     Dates: start: 20140107
  23. L CARTIN FF [Concomitant]
     Active Substance: LEVOCARNITINE
     Indication: ATYPICAL HAEMOLYTIC URAEMIC SYNDROME
     Dosage: 0.4 ML, QD
     Route: 048
     Dates: start: 20131105, end: 20141112
  24. SOLIRIS [Suspect]
     Active Substance: ECULIZUMAB
     Dosage: 300 MG, Q2W
     Route: 042
  25. SOLIRIS [Suspect]
     Active Substance: ECULIZUMAB
     Dosage: 300 MG, Q2W
     Route: 042
  26. DIOVAN [Concomitant]
     Active Substance: VALSARTAN
     Indication: ATYPICAL HAEMOLYTIC URAEMIC SYNDROME
     Dosage: 1 MG, QD
     Route: 048
     Dates: start: 20140226, end: 20141029
  27. SOLIRIS [Suspect]
     Active Substance: ECULIZUMAB
     Indication: ATYPICAL HAEMOLYTIC URAEMIC SYNDROME
     Dosage: 150 MG, SINGLE
     Route: 042
     Dates: start: 20130830, end: 20130830
  28. L CARTIN FF [Concomitant]
     Active Substance: LEVOCARNITINE
     Dosage: 0.2 ML, QD
     Route: 048
     Dates: start: 20141113, end: 20141128
  29. GENOTROPIN [Concomitant]
     Active Substance: SOMATROPIN
     Indication: HAEMOLYTIC URAEMIC SYNDROME
     Dosage: 0.2-0.6MG, QD TO 6TH PER WEEK
     Route: 058
     Dates: start: 20141021

REACTIONS (31)
  - Corynebacterium infection [Recovering/Resolving]
  - Catheter site infection [Recovering/Resolving]
  - Catheter site infection [Recovering/Resolving]
  - Acinetobacter infection [Recovering/Resolving]
  - Laryngeal stenosis [Recovering/Resolving]
  - Corynebacterium infection [Recovering/Resolving]
  - Catheter site infection [Recovering/Resolving]
  - Rash [Recovered/Resolved]
  - Pyrexia [Unknown]
  - Cough [Recovered/Resolved]
  - Corynebacterium infection [Recovering/Resolving]
  - Excessive granulation tissue [Recovered/Resolved]
  - Infusion related reaction [Recovered/Resolved]
  - Pyrexia [Recovered/Resolved]
  - Drug ineffective [Unknown]
  - Corynebacterium infection [Recovering/Resolving]
  - Seizure [Recovering/Resolving]
  - Pseudomonas infection [Recovering/Resolving]
  - Catheter site infection [Recovering/Resolving]
  - Catheter site infection [Recovering/Resolving]
  - Sepsis [Recovering/Resolving]
  - Peritonitis [Recovering/Resolving]
  - Catheter site infection [Recovering/Resolving]
  - Staphylococcal infection [Recovering/Resolving]
  - Pyrexia [Recovered/Resolved]
  - Pyrexia [Recovered/Resolved]
  - Pyrexia [Recovered/Resolved]
  - Renal disorder [Unknown]
  - Seizure [Recovering/Resolving]
  - Anaphylactoid reaction [Recovered/Resolved]
  - Diarrhoea [Recovering/Resolving]

NARRATIVE: CASE EVENT DATE: 20130830
